FAERS Safety Report 8208856-1 (Version None)
Quarter: 2012Q1

REPORT INFORMATION
  Report Type: 
  Country: None (occurrence: None)
  Receive Date: 20120314
  Receipt Date: 20120312
  Transmission Date: 20120608
  Serious: Yes (Hospitalization, Disabling)
  Sender: FDA-Public Use
  Company Number: US-MERCK-1104USA04057

PATIENT
  Age: 59 Year
  Sex: Female

DRUGS (9)
  1. FOSAMAX [Suspect]
     Indication: OSTEOPOROSIS
     Route: 048
     Dates: start: 19990101, end: 20070301
  2. CITRACAL + D [Concomitant]
     Route: 065
     Dates: start: 19980101
  3. FOSAMAX [Suspect]
     Route: 048
     Dates: start: 20001001, end: 20070301
  4. FOSAMAX PLUS D [Suspect]
     Route: 048
     Dates: start: 20060901
  5. FOSAMAX [Suspect]
     Route: 048
     Dates: start: 20050901
  6. HORMONES (UNSPECIFIED) [Concomitant]
     Route: 065
     Dates: start: 19770101, end: 20000101
  7. CORTICOSTEROIDS (UNSPECIFIED) [Concomitant]
     Route: 065
     Dates: start: 20040101, end: 20110101
  8. SYNTHROID [Concomitant]
     Route: 065
     Dates: start: 19990101
  9. VITAMINS (UNSPECIFIED) [Concomitant]
     Route: 065
     Dates: start: 19980101

REACTIONS (32)
  - BRUXISM [None]
  - HYPERTENSION [None]
  - HAEMATOCRIT DECREASED [None]
  - DENTAL NECROSIS [None]
  - ATROPHY [None]
  - GINGIVITIS [None]
  - VITAMIN D DEFICIENCY [None]
  - OSTEOARTHRITIS [None]
  - BONE DISORDER [None]
  - BONE LOSS [None]
  - PERIODONTITIS [None]
  - COSTOCHONDRITIS [None]
  - DENTAL FISTULA [None]
  - TOOTH FRACTURE [None]
  - OSTEOPOROSIS [None]
  - BLOOD CHOLESTEROL INCREASED [None]
  - HYPERGLYCAEMIA [None]
  - GINGIVAL DISORDER [None]
  - DEPRESSION [None]
  - JOINT EFFUSION [None]
  - FEMUR FRACTURE [None]
  - STRESS FRACTURE [None]
  - TOOTH DISORDER [None]
  - LOW TURNOVER OSTEOPATHY [None]
  - MULTIPLE INJURIES [None]
  - HAEMOGLOBIN DECREASED [None]
  - GLAUCOMA [None]
  - EDENTULOUS [None]
  - FISTULA [None]
  - OSTEONECROSIS OF JAW [None]
  - TYPE 2 DIABETES MELLITUS [None]
  - FALL [None]
